FAERS Safety Report 4883804-0 (Version None)
Quarter: 2006Q1

REPORT INFORMATION
  Report Type: 
  Country: None (occurrence: None)
  Receive Date: 20060113
  Receipt Date: 20051223
  Transmission Date: 20060701
  Serious: Yes (Other)
  Sender: FDA-Public Use
  Company Number: USA0511112818

PATIENT
  Age: 9 Year
  Sex: Female
  Weight: 26.7622 kg

DRUGS (2)
  1. STRATTERA [Suspect]
     Indication: ATTENTION DEFICIT/HYPERACTIVITY DISORDER
     Dosage: 25 MG
     Dates: start: 20040111, end: 20051102
  2. CONCERTA [Concomitant]

REACTIONS (2)
  - INJURY ASPHYXIATION [None]
  - SUICIDE ATTEMPT [None]
